FAERS Safety Report 6959677-9 (Version None)
Quarter: 2010Q3

REPORT INFORMATION
  Report Type: 
  Country: None (occurrence: None)
  Receive Date: 20100831
  Receipt Date: 20100823
  Transmission Date: 20110219
  Serious: Yes (Hospitalization)
  Sender: FDA-Public Use
  Company Number: DE-ABBOTT-10P-062-0649110-00

PATIENT
  Sex: Female

DRUGS (9)
  1. HUMIRA [Suspect]
     Indication: PSORIATIC ARTHROPATHY
     Route: 058
     Dates: start: 20080101, end: 20100502
  2. HUMIRA [Suspect]
  3. ATACAND HCT [Concomitant]
     Indication: HYPERTENSION
  4. EFEROX [Concomitant]
     Indication: HYPOTHYROIDISM
  5. EFEROX [Concomitant]
     Route: 048
  6. AGOMELATIN [Concomitant]
     Indication: DEPRESSION
  7. MTX [Concomitant]
     Indication: PSORIATIC ARTHROPATHY
  8. TILIDIN [Concomitant]
     Indication: PRODUCT USED FOR UNKNOWN INDICATION
  9. SYMBICORT [Concomitant]
     Indication: PRODUCT USED FOR UNKNOWN INDICATION
     Route: 055

REACTIONS (2)
  - NEPHROLITHIASIS [None]
  - RENAL COLIC [None]
